FAERS Safety Report 23837070 (Version 2)
Quarter: 2024Q2

REPORT INFORMATION
  Report Type: Spontaneous
  Country: US (occurrence: US)
  Receive Date: 20240509
  Receipt Date: 20240513
  Transmission Date: 20240715
  Serious: No
  Sender: FDA-Public Use
  Company Number: US-HALEON-2174053

PATIENT
  Age: 34 Year
  Sex: Female

DRUGS (1)
  1. NEXIUM 24HR CLEARMINIS [Suspect]
     Active Substance: ESOMEPRAZOLE MAGNESIUM
     Indication: Dyspepsia
     Dosage: EXPDATE:202509
     Dates: start: 20240410, end: 20240430

REACTIONS (1)
  - Drug ineffective [Unknown]
